FAERS Safety Report 24638484 (Version 1)
Quarter: 2024Q4

REPORT INFORMATION
  Report Type: Report from Study
  Country: US (occurrence: US)
  Receive Date: 20241119
  Receipt Date: 20241119
  Transmission Date: 20250114
  Serious: Yes (Hospitalization, Other)
  Sender: PFIZER
  Company Number: US-PFIZER INC-202400197754

PATIENT
  Age: 37 Year
  Sex: Female
  Weight: 50.794 kg

DRUGS (6)
  1. TUKYSA [Suspect]
     Active Substance: TUCATINIB
     Indication: Breast cancer female
     Dosage: 300 MG, 2X/DAY
     Route: 048
     Dates: start: 20240604
  2. TUKYSA [Suspect]
     Active Substance: TUCATINIB
     Dosage: 300 MG, 2X/DAY  (TAKE 2 TABLETS IN THE MORNING AND AT BEDTIME)
     Route: 048
  3. TUKYSA [Suspect]
     Active Substance: TUCATINIB
     Dosage: 150 MG TWICE DAILY
     Dates: start: 20240604
  4. XELODA [Concomitant]
     Active Substance: CAPECITABINE
     Indication: Breast cancer
     Dosage: 1000 MG/M2, 2X/DAY
  5. XELODA [Concomitant]
     Active Substance: CAPECITABINE
     Dosage: 1500 MG, BID, 14 DAYS ON 7 OFF
  6. HERCEPTIN [Concomitant]
     Active Substance: TRASTUZUMAB
     Indication: Breast cancer
     Dosage: 312 MG, EVERY 3 WEEKS

REACTIONS (9)
  - Thrombosis [Recovering/Resolving]
  - Sepsis [Recovered/Resolved]
  - Nephrolithiasis [Unknown]
  - Hallucination [Not Recovered/Not Resolved]
  - Feeling abnormal [Recovered/Resolved]
  - Paraesthesia [Recovered/Resolved]
  - Cystitis [Not Recovered/Not Resolved]
  - Oral candidiasis [Recovered/Resolved]
  - Dry skin [Unknown]

NARRATIVE: CASE EVENT DATE: 20240618
